FAERS Safety Report 23846814 (Version 3)
Quarter: 2024Q4

REPORT INFORMATION
  Report Type: Report from Study
  Country: US (occurrence: US)
  Receive Date: 20240513
  Receipt Date: 20241010
  Transmission Date: 20250114
  Serious: Yes (Hospitalization, Other)
  Sender: JOHNSON AND JOHNSON
  Company Number: US-JNJFOC-20240513498

PATIENT
  Age: 26 Year
  Sex: Female

DRUGS (1)
  1. SPRAVATO [Suspect]
     Active Substance: ESKETAMINE
     Indication: Depression
     Dosage: ^^56 MG, 3 TOTAL DOSES^^
     Dates: start: 20240226, end: 20240729

REACTIONS (1)
  - Tonsillectomy [Recovering/Resolving]

NARRATIVE: CASE EVENT DATE: 20240228
